FAERS Safety Report 8596416-2 (Version None)
Quarter: 2012Q3

REPORT INFORMATION
  Report Type: 
  Country: None (occurrence: None)
  Receive Date: 20120807
  Receipt Date: 20120807
  Transmission Date: 20120928
  Serious: No
  Sender: FDA-Public Use
  Company Number: None

PATIENT
  Age: 57 Year
  Sex: Male
  Weight: 77.1115 kg

DRUGS (1)
  1. DALIRESP [Suspect]
     Indication: CHRONIC OBSTRUCTIVE PULMONARY DISEASE
     Dosage: 500 MCG ONE A DAY ORAL
     Route: 048
     Dates: start: 20120614, end: 20120617

REACTIONS (12)
  - DIARRHOEA [None]
  - ABDOMINAL DISCOMFORT [None]
  - HEADACHE [None]
  - PANIC ATTACK [None]
  - ANXIETY [None]
  - SUICIDAL IDEATION [None]
  - PARANOIA [None]
  - VISUAL IMPAIRMENT [None]
  - DECREASED APPETITE [None]
  - INSOMNIA [None]
  - DEPRESSION [None]
  - WEIGHT DECREASED [None]
